FAERS Safety Report 4603189-4 (Version None)
Quarter: 2005Q1

REPORT INFORMATION
  Report Type: 
  Country: None (occurrence: None)
  Receive Date: 20050307
  Receipt Date: 20050224
  Transmission Date: 20050727
  Serious: Yes (Other)
  Sender: FDA-Public Use
  Company Number: 2005-02-1451

PATIENT
  Age: 39 Year
  Sex: Male
  Weight: 92 kg

DRUGS (2)
  1. CELESTAMINE TAB [Suspect]
     Indication: POSTOPERATIVE CARE
     Dosage: 1 MG QD ORAL
     Route: 048
     Dates: start: 20050130, end: 20050227
  2. JODTHYROX [Concomitant]

REACTIONS (2)
  - APHASIA [None]
  - VISUAL FIELD DEFECT [None]
